FAERS Safety Report 4815688-0 (Version None)
Quarter: 2005Q4

REPORT INFORMATION
  Report Type: 
  Country: None (occurrence: None)
  Receive Date: 20051031
  Receipt Date: 20051010
  Transmission Date: 20060501
  Serious: Yes (Hospitalization)
  Sender: FDA-Public Use
  Company Number: US-BRISTOL-MYERS SQUIBB COMPANY-13139811

PATIENT
  Age: 77 Year
  Sex: Male
  Weight: 68 kg

DRUGS (8)
  1. CETUXIMAB [Suspect]
     Indication: NON-SMALL CELL LUNG CANCER
     Dosage: INITIATED ON 09-AUG-2005.  249.7 MG/M2. ADMINISTERED IV OVER 1 HOUR. CYCLE 3 DAY 8.
     Route: 042
     Dates: start: 20051004, end: 20051004
  2. CARBOPLATIN [Suspect]
     Indication: NON-SMALL CELL LUNG CANCER
     Dosage: INITIATED ON 09-AUG-2005.  6 AUC ADMINISTERED OVER ONE HOUR.
     Route: 042
     Dates: start: 20050927, end: 20050927
  3. DOCETAXEL [Suspect]
     Indication: NON-SMALL CELL LUNG CANCER
     Dosage: INITIATED ON 09-AUG-2005.  75 MG/M2. ADMINISTERED OVER ONE HOUR.
     Route: 042
     Dates: start: 20050927, end: 20050927
  4. AMBIEN [Concomitant]
     Indication: SLEEP DISORDER
     Dosage: ONE TABLET HS PRN.
     Route: 048
     Dates: start: 20050920
  5. HYDROCODONE BITARTRATE + ACETAMINOPHEN [Concomitant]
     Indication: PAIN
     Dosage: 5-325 MG EVERY FOUR TO SIX HOURS AS NEEDED.
     Route: 048
     Dates: start: 20050829
  6. LORAZEPAM [Concomitant]
     Indication: NAUSEA
     Dosage: ONE TABLET EVERY FOUR HOURS TO 6 HOURS PRN.
     Route: 048
     Dates: start: 20050803
  7. LUNESTA [Concomitant]
     Indication: SLEEP DISORDER
     Dosage: ONE TABLET AT HS PRN.
     Route: 048
     Dates: start: 20050729
  8. PROMETHAZINE HCL [Concomitant]
     Indication: NAUSEA
     Dosage: ONE TABLE EVERY FOUR HOURS PRN.
     Route: 048
     Dates: start: 20050803

REACTIONS (2)
  - DEHYDRATION [None]
  - WHITE BLOOD CELL ANALYSIS DECREASED [None]
